FAERS Safety Report 14731011 (Version 2)
Quarter: 2018Q2

REPORT INFORMATION
  Report Type: Spontaneous
  Country: KZ (occurrence: KZ)
  Receive Date: 20180406
  Receipt Date: 20180521
  Transmission Date: 20180711
  Serious: Yes (Other)
  Sender: FDA-Public Use
  Company Number: KZ-VIFOR (INTERNATIONAL) INC.-VIT-2018-02934

PATIENT
  Age: 36 Year
  Sex: Male

DRUGS (3)
  1. MIRCERA [Suspect]
     Active Substance: METHOXY POLYETHYLENE GLYCOL-EPOETIN BETA
     Indication: GLOMERULONEPHRITIS CHRONIC
  2. EPOETIN BETA [Suspect]
     Active Substance: ERYTHROPOIETIN
     Indication: PRODUCT USED FOR UNKNOWN INDICATION
     Dosage: EVERY HAEMODIALYSIS SESSION.
     Route: 065
     Dates: start: 2018
  3. MIRCERA [Suspect]
     Active Substance: METHOXY POLYETHYLENE GLYCOL-EPOETIN BETA
     Indication: END STAGE RENAL DISEASE
     Route: 065
     Dates: end: 201802

REACTIONS (6)
  - Chronic hepatitis B [Unknown]
  - Hypertension [Unknown]
  - Gastric ulcer [Unknown]
  - Asthenia [Recovered/Resolved]
  - Nephrogenic anaemia [Unknown]
  - Haemoglobin decreased [Recovered/Resolved]

NARRATIVE: CASE EVENT DATE: 2018
